FAERS Safety Report 25701244 (Version 1)
Quarter: 2025Q3

REPORT INFORMATION
  Report Type: Spontaneous
  Country: US (occurrence: None)
  Receive Date: 20250819
  Receipt Date: 20250819
  Transmission Date: 20251020
  Serious: No
  Sender: FDA-CTU
  Company Number: None

PATIENT
  Age: 59 Year
  Sex: Male
  Weight: 66.22 kg

DRUGS (4)
  1. CABENUVA [Suspect]
     Active Substance: CABOTEGRAVIR\RILPIVIRINE
     Indication: Drug therapy
     Dosage: OTHER QUANTITY : 600-900 MG;?FREQUENCY : MONTHLY;?
     Route: 030
     Dates: start: 20250705
  2. TESTOSTERONE [Suspect]
     Active Substance: TESTOSTERONE
  3. TESTOSTERONE [Concomitant]
     Active Substance: TESTOSTERONE
     Dates: start: 20250805
  4. NAPROXEN [Concomitant]
     Active Substance: NAPROXEN

REACTIONS (3)
  - Pyrexia [None]
  - Injection site swelling [None]
  - Wrong technique in product usage process [None]

NARRATIVE: CASE EVENT DATE: 20250809
